FAERS Safety Report 6519843-3 (Version None)
Quarter: 2009Q4

REPORT INFORMATION
  Report Type: 
  Country: None (occurrence: None)
  Receive Date: 20091228
  Receipt Date: 20091228
  Transmission Date: 20100525
  Serious: No
  Sender: FDA-Public Use
  Company Number: None

PATIENT
  Sex: Female
  Weight: 83.9154 kg

DRUGS (1)
  1. ZICAM NO-DRIP LIQUID NASAL GEL MATRIXX [Suspect]
     Indication: NASOPHARYNGITIS
     Dosage: 1 SQUIRT INTO EACH NOSTRIL ??? EVERY 4-6 HOURS? NASAL
     Route: 045
     Dates: start: 20081205, end: 20081215

REACTIONS (5)
  - ANGER [None]
  - ANXIETY [None]
  - FRUSTRATION [None]
  - HYPOSMIA [None]
  - PAROSMIA [None]
